FAERS Safety Report 9156638 (Version 1)
Quarter: 2013Q1

REPORT INFORMATION
  Report Type: Spontaneous
  Country: ES (occurrence: None)
  Receive Date: 20130206
  Receipt Date: 20130206
  Transmission Date: 20140127
  Serious: Yes (Other)
  Sender: FDA-Public Use
  Company Number: ES-1196435

PATIENT
  Age: 31 Year
  Sex: Female

DRUGS (3)
  1. MAXIDEX OPHTHALMIC (DEXAMETHASONE) [Suspect]
     Indication: CORNEAL ABRASION
     Route: 047
  2. MAXIDEX OPHTHALMIC (DEXAMETHASONE) [Suspect]
     Indication: KERATITIS
     Route: 047
  3. ACYCLOVIR [Concomitant]

REACTIONS (3)
  - Keratitis bacterial [None]
  - Ulcerative keratitis [None]
  - Corneal oedema [None]
